FAERS Safety Report 8762814 (Version 3)
Quarter: 2012Q4

REPORT INFORMATION
  Report Type: Report from Study
  Country: FR (occurrence: FR)
  Receive Date: 20120829
  Receipt Date: 20120924
  Transmission Date: 20130627
  Serious: Yes (Other)
  Sender: FDA-Public Use
  Company Number: FR-PFIZER INC-2012207167

PATIENT
  Age: 55 Year
  Sex: Male
  Weight: 85 kg

DRUGS (1)
  1. CRIZOTINIB [Suspect]
     Indication: BRONCHIAL CARCINOMA
     Dosage: 250 mg, 2x/day
     Dates: start: 20120110

REACTIONS (1)
  - Hepatocellular injury [Not Recovered/Not Resolved]
